FAERS Safety Report 7461998-0 (Version None)
Quarter: 2011Q1

REPORT INFORMATION
  Report Type: 
  Country: None (occurrence: None)
  Receive Date: 20110302
  Receipt Date: 20101108
  Transmission Date: 20110831
  Serious: Yes (Other)
  Sender: FDA-Public Use
  Company Number: 163-21880-10111352

PATIENT
  Age: 64 Year
  Sex: Female

DRUGS (2)
  1. REVLIMID [Suspect]
     Indication: MULTIPLE MYELOMA
     Dosage: 25 MG, 1 IN 1 D, PO, 15 MG, DAILY ON DAYS 1-14 Q 21 DAYS, PO
     Route: 048
     Dates: start: 20080215, end: 20091224
  2. REVLIMID [Suspect]
     Indication: MULTIPLE MYELOMA
     Dosage: 25 MG, 1 IN 1 D, PO, 15 MG, DAILY ON DAYS 1-14 Q 21 DAYS, PO
     Route: 048
     Dates: start: 20100304

REACTIONS (2)
  - FURUNCLE [None]
  - IMPAIRED HEALING [None]
